FAERS Safety Report 8489219-0 (Version None)
Quarter: 2012Q3

REPORT INFORMATION
  Report Type: 
  Country: None (occurrence: None)
  Receive Date: 20120705
  Receipt Date: 20120625
  Transmission Date: 20120928
  Serious: Yes (Hospitalization)
  Sender: FDA-Public Use
  Company Number: NL-MEDIMMUNE-MEDI-0012919

PATIENT
  Age: 2 Month
  Sex: Male
  Weight: 5.3 kg

DRUGS (3)
  1. SYNAGIS [Suspect]
     Indication: ANTIVIRAL PROPHYLAXIS
     Route: 030
     Dates: start: 20110211, end: 20110211
  2. SYNAGIS [Suspect]
     Route: 030
     Dates: start: 20110310
  3. FERRO BEVERAGE [Concomitant]

REACTIONS (3)
  - BRONCHIOLITIS [None]
  - PRODUCTIVE COUGH [None]
  - DYSPNOEA [None]
